FAERS Safety Report 8921921 (Version 1)
Quarter: 2012Q4

REPORT INFORMATION
  Report Type: Spontaneous
  Country: US (occurrence: None)
  Receive Date: 20121119
  Receipt Date: 20121119
  Transmission Date: 20130627
  Serious: Yes (Other)
  Sender: FDA-Public Use
  Company Number: None

PATIENT
  Age: 16 Year
  Sex: Male
  Weight: 70.31 kg

DRUGS (3)
  1. SERTRALINE 100 MG GREEN STONE [Suspect]
     Indication: OBSESSIVE-COMPULSIVE DISORDER
     Dosage: QAM
     Route: 048
     Dates: start: 20120912, end: 20121016
  2. SERTRALINE 100 MG GREEN STONE [Suspect]
     Indication: OBSESSIVE-COMPULSIVE DISORDER
  3. SERTRALINE 100 MG NORTHSTAR [Suspect]
     Dosage: qam
     Route: 048
     Dates: start: 20120916, end: 20121107

REACTIONS (6)
  - Obsessive thoughts [None]
  - Depressed mood [None]
  - Social avoidant behaviour [None]
  - Decreased appetite [None]
  - Anxiety [None]
  - Fear of disease [None]
